FAERS Safety Report 9123013 (Version 1)
Quarter: 2013Q1

REPORT INFORMATION
  Report Type: Spontaneous
  Country: US (occurrence: US)
  Receive Date: 20130115
  Receipt Date: 20130115
  Transmission Date: 20140127
  Serious: Yes (Hospitalization, Congenital Anomaly, Other)
  Sender: FDA-Public Use
  Company Number: US-MERCK-1301USA003346

PATIENT
  Age: 3 Year
  Sex: Female

DRUGS (5)
  1. SINGULAIR [Suspect]
     Indication: ASTHMA
     Dosage: 4 MG, QD
     Route: 048
  2. ZYRTEC [Suspect]
     Indication: RHINITIS ALLERGIC
     Dosage: 2.5 MG, QD
     Route: 048
  3. PULMICORT [Suspect]
     Dosage: 0.5 MG, BID
  4. EXJADE [Suspect]
     Indication: IRON OVERLOAD
     Dosage: 250 MG, QD
     Route: 048
  5. EXJADE [Suspect]
     Indication: PANCYTOPENIA

REACTIONS (3)
  - Pancytopenia [Unknown]
  - Epistaxis [Unknown]
  - Condition aggravated [Unknown]
